FAERS Safety Report 5451912-1 (Version None)
Quarter: 2007Q3

REPORT INFORMATION
  Report Type: 
  Country: None (occurrence: None)
  Receive Date: 20070912
  Receipt Date: 20070829
  Transmission Date: 20080115
  Serious: Yes (Other)
  Sender: FDA-Public Use
  Company Number: VISP-GE-0708S-0381

PATIENT
  Age: 76 Year
  Sex: Male

DRUGS (3)
  1. VISIPAQUE [Suspect]
     Indication: NEOPLASM
     Dosage: 70 ML, SINGLE DOSE, I.V.; SINGLE DOSE, I.V.
     Route: 042
     Dates: start: 20070813, end: 20070813
  2. VISIPAQUE [Suspect]
     Indication: NEOPLASM
     Dosage: 70 ML, SINGLE DOSE, I.V.; SINGLE DOSE, I.V.
     Route: 042
     Dates: start: 20070814, end: 20070814
  3. VISIPAQUE [Suspect]

REACTIONS (4)
  - AMNESTIC DISORDER [None]
  - CONVULSION [None]
  - DEPRESSED LEVEL OF CONSCIOUSNESS [None]
  - DISORIENTATION [None]
